FAERS Safety Report 7738599-X (Version None)
Quarter: 2011Q3

REPORT INFORMATION
  Report Type: 
  Country: None (occurrence: None)
  Receive Date: 20110908
  Receipt Date: 20110830
  Transmission Date: 20111222
  Serious: Yes (Other)
  Sender: FDA-Public Use
  Company Number: US-ASTRAZENECA-2011SE40892

PATIENT
  Age: 65 Year
  Sex: Male
  Weight: 116.6 kg

DRUGS (2)
  1. VIMOVO [Suspect]
     Dosage: 500/20 MG
     Route: 048
  2. NAPROXEN [Concomitant]
     Dates: start: 20110801

REACTIONS (2)
  - FAECES DISCOLOURED [None]
  - MELAENA [None]
